FAERS Safety Report 12918044 (Version 1)
Quarter: 2016Q4

REPORT INFORMATION
  Report Type: Spontaneous
  Country: US (occurrence: US)
  Receive Date: 20161107
  Receipt Date: 20161107
  Transmission Date: 20170207
  Serious: Yes (Death, Hospitalization)
  Sender: FDA-Public Use
  Company Number: US-ACTELION-A-NJ2016-144552

PATIENT
  Age: 77 Year
  Sex: Female

DRUGS (20)
  1. FUROSEMIDE. [Concomitant]
     Active Substance: FUROSEMIDE
     Dosage: 40 MG, UNK
     Route: 048
  2. LIPITOR [Concomitant]
     Active Substance: ATORVASTATIN CALCIUM
     Dosage: 20 MG, QPM
     Route: 048
  3. MONTELUKAST [Concomitant]
     Active Substance: MONTELUKAST SODIUM
     Dosage: 10 MG, QPM
  4. ONDANSETRON [Concomitant]
     Active Substance: ONDANSETRON
     Dosage: 2 MG/ML, Q8H
     Route: 042
  5. SCOPOLAMINE [Concomitant]
     Active Substance: SCOPOLAMINE
     Dosage: 1.5 MG, UNK
     Route: 062
  6. COUMADIN [Concomitant]
     Active Substance: WARFARIN SODIUM
  7. METHYLPREDNISOLONE. [Concomitant]
     Active Substance: METHYLPREDNISOLONE
     Dosage: 40 MG/ML, Q6HRS
     Route: 042
  8. SENNA [Concomitant]
     Active Substance: SENNA LEAF\SENNOSIDES\SENNOSIDES A AND B
     Dosage: 2 TABLETS, Q72HRS
     Route: 048
  9. OPSUMIT [Suspect]
     Active Substance: MACITENTAN
     Indication: PULMONARY ARTERIAL HYPERTENSION
     Dosage: 10 MG, QD
     Route: 048
     Dates: start: 20140807
  10. SILDENAFIL. [Concomitant]
     Active Substance: SILDENAFIL
     Indication: PULMONARY ARTERIAL HYPERTENSION
  11. MOMETASONE [Concomitant]
     Active Substance: MOMETASONE
     Dosage: 220 MCG, (2 PUFFS) Q12HRS
  12. ALBUTEROL. [Concomitant]
     Active Substance: ALBUTEROL
     Dosage: UNK, Q4HRS
     Route: 055
  13. COLECALCIFEROL [Concomitant]
     Active Substance: CHOLECALCIFEROL
     Dosage: 1000 U, QD
     Route: 048
  14. METOCLOPRAMIDE. [Concomitant]
     Active Substance: METOCLOPRAMIDE
     Dosage: 10 MG, TID, PRN
     Route: 048
  15. PANTOPRAZOLE [Concomitant]
     Active Substance: PANTOPRAZOLE SODIUM
     Dosage: 40 MG, UNK
  16. ACETAMINOPHEN. [Concomitant]
     Active Substance: ACETAMINOPHEN
     Dosage: 650 MG, UNK
     Route: 048
  17. GLUCAGON. [Concomitant]
     Active Substance: GLUCAGON
     Dosage: 1 MG, Q15 MIN, PRN
     Route: 030
  18. METOPROLOL. [Concomitant]
     Active Substance: METOPROLOL
     Dosage: 300 MG, UNK
  19. CLOPIDOGREL [Concomitant]
     Active Substance: CLOPIDOGREL BISULFATE
     Dosage: 75 MG, UNK
     Route: 048
  20. IPRATROPIUM [Concomitant]
     Active Substance: IPRATROPIUM
     Dosage: 0.2% Q4H
     Route: 055

REACTIONS (10)
  - Left ventricular failure [Unknown]
  - Haemoptysis [Unknown]
  - Death [Fatal]
  - Lung neoplasm malignant [Unknown]
  - Dyspnoea [Unknown]
  - Hypoxia [Unknown]
  - Fluid overload [Unknown]
  - Pleural effusion [Unknown]
  - Cardiac failure congestive [Unknown]
  - Peripheral swelling [Unknown]

NARRATIVE: CASE EVENT DATE: 20161016
